FAERS Safety Report 5573348-5 (Version None)
Quarter: 2007Q4

REPORT INFORMATION
  Report Type: 
  Country: None (occurrence: None)
  Receive Date: 20071220
  Receipt Date: 20071220
  Transmission Date: 20080405
  Serious: Yes (Hospitalization)
  Sender: FDA-Public Use
  Company Number: None

PATIENT
  Age: 64 Year
  Sex: Female
  Weight: 89 kg

DRUGS (14)
  1. NEOSTIGMINE [Suspect]
     Indication: ILEUS
     Dosage: 3MG OTO IV
     Route: 042
     Dates: start: 20070811
  2. AMIODARONE HCL [Concomitant]
  3. LIPITOR [Concomitant]
  4. PLAVIX [Concomitant]
  5. ZETIA [Concomitant]
  6. LASIX [Concomitant]
  7. INSULIN [Concomitant]
  8. ISDN [Concomitant]
  9. SYNTHROID [Concomitant]
  10. TOPROL-XL [Concomitant]
  11. BENICOR [Concomitant]
  12. PROTONIX [Concomitant]
  13. WARFARIN SODIUM [Concomitant]
  14. AMBIEN [Concomitant]

REACTIONS (5)
  - BRONCHOSPASM [None]
  - DYSPNOEA [None]
  - ILL-DEFINED DISORDER [None]
  - INCORRECT DOSE ADMINISTERED [None]
  - MEDICATION ERROR [None]
